FAERS Safety Report 4694345-8 (Version None)
Quarter: 2005Q2

REPORT INFORMATION
  Report Type: 
  Country: None (occurrence: None)
  Receive Date: 20050620
  Receipt Date: 20050609
  Transmission Date: 20051028
  Serious: Yes (Other)
  Sender: FDA-Public Use
  Company Number: PHBS2005TR08262

PATIENT
  Age: 32 Year
  Sex: Female

DRUGS (1)
  1. ZELMAC [Suspect]

REACTIONS (2)
  - BREAST DISCHARGE [None]
  - FIBROCYSTIC BREAST DISEASE [None]
